FAERS Safety Report 20443589 (Version 1)
Quarter: 2022Q1

REPORT INFORMATION
  Report Type: Spontaneous
  Country: US (occurrence: None)
  Receive Date: 20220208
  Receipt Date: 20220208
  Transmission Date: 20220424
  Serious: Yes (Hospitalization)
  Sender: FDA-Public Use
  Company Number: None

PATIENT
  Age: 24 Year
  Sex: Female
  Weight: 60.6 kg

DRUGS (5)
  1. DOXORUBICIN HYDROCHLORIDE [Suspect]
     Active Substance: DOXORUBICIN HYDROCHLORIDE
     Dates: end: 20220201
  2. METHOTREXATE [Suspect]
     Active Substance: METHOTREXATE
     Dates: end: 20220118
  3. ONCASPAR [Suspect]
     Active Substance: PEGASPARGASE
     Dosage: OTHER QUANTITY : 3375 UNIT;?
     Dates: end: 20220121
  4. RITUXIMAB [Suspect]
     Active Substance: RITUXIMAB
     Dates: end: 20220125
  5. VINCRISTINE SULFATE [Suspect]
     Active Substance: VINCRISTINE SULFATE
     Dates: end: 20220201

REACTIONS (4)
  - Febrile neutropenia [None]
  - Tachycardia [None]
  - Hypotension [None]
  - Blood lactic acid increased [None]

NARRATIVE: CASE EVENT DATE: 20220202
